FAERS Safety Report 19666624 (Version 1)
Quarter: 2021Q3

REPORT INFORMATION
  Report Type: Spontaneous
  Country: US (occurrence: US)
  Receive Date: 20210806
  Receipt Date: 20210806
  Transmission Date: 20211014
  Serious: No
  Sender: FDA-Public Use
  Company Number: None

PATIENT

DRUGS (2)
  1. LIDOCAINE HYDROCHLORIDE. [Suspect]
     Active Substance: LIDOCAINE HYDROCHLORIDE
     Route: 061
  2. FENTANYL. [Suspect]
     Active Substance: FENTANYL
     Route: 061

REACTIONS (3)
  - Device use confusion [None]
  - Incorrect product administration duration [None]
  - Wrong technique in device usage process [None]
